FAERS Safety Report 16633362 (Version 1)
Quarter: 2019Q3

REPORT INFORMATION
  Report Type: Spontaneous
  Country: JP (occurrence: JP)
  Receive Date: 20190725
  Receipt Date: 20190725
  Transmission Date: 20191004
  Serious: Yes (Other)
  Sender: FDA-Public Use
  Company Number: GXJP2019JP001442

PATIENT
  Age: 84 Year
  Sex: Female
  Weight: 60 kg

DRUGS (6)
  1. ISCOTIN [Concomitant]
     Active Substance: ISONIAZID
     Indication: BONE TUBERCULOSIS
     Dosage: 200 MG, UNK
     Route: 065
  2. RIFAMPICIN CAPSULES [Suspect]
     Active Substance: RIFAMPIN
     Indication: BONE TUBERCULOSIS
     Dosage: 450 MG, QD (IN THE MORNING)
     Route: 048
  3. RIFAMPICIN CAPSULES [Suspect]
     Active Substance: RIFAMPIN
     Dosage: 450 MG, QD (IN THE MORNING)
     Route: 048
     Dates: start: 20190713
  4. PYRAZINAMIDE. [Concomitant]
     Active Substance: PYRAZINAMIDE
     Indication: BONE TUBERCULOSIS
     Dosage: UNK
     Route: 065
  5. ISCOTIN [Concomitant]
     Active Substance: ISONIAZID
     Dosage: 300 MG, UNK
     Route: 065
  6. EBUTOL [Concomitant]
     Active Substance: ETHAMBUTOL HYDROCHLORIDE
     Indication: BONE TUBERCULOSIS
     Dosage: UNK
     Route: 065

REACTIONS (4)
  - C-reactive protein increased [Unknown]
  - Sarcoma [Unknown]
  - Peripheral swelling [Unknown]
  - Therapeutic product effect incomplete [Unknown]
